FAERS Safety Report 4811677-0 (Version None)
Quarter: 2005Q4

REPORT INFORMATION
  Report Type: 
  Country: None (occurrence: None)
  Receive Date: 20051027
  Receipt Date: 20050818
  Transmission Date: 20060501
  Serious: Yes (Hospitalization, Other)
  Sender: FDA-Public Use
  Company Number: US-MERCK-0508USA03601

PATIENT
  Age: 61 Year
  Sex: Female
  Weight: 50 kg

DRUGS (2)
  1. VYTORIN [Suspect]
     Indication: BLOOD CHOLESTEROL INCREASED
     Route: 048
     Dates: end: 20050101
  2. VYTORIN [Suspect]
     Indication: LIPIDS INCREASED
     Route: 048
     Dates: end: 20050101

REACTIONS (3)
  - CHEST PAIN [None]
  - RENAL FAILURE [None]
  - RHABDOMYOLYSIS [None]
